FAERS Safety Report 6598133-7 (Version None)
Quarter: 2010Q1

REPORT INFORMATION
  Report Type: 
  Country: None (occurrence: None)
  Receive Date: 20100224
  Receipt Date: 20050310
  Transmission Date: 20100710
  Serious: No
  Sender: FDA-Public Use
  Company Number: US-ALLERGAN-200501951

PATIENT
  Age: 41 Year
  Sex: Male

DRUGS (5)
  1. BOTOX [Suspect]
     Indication: STRABISMUS
     Dosage: 0.5 CC. (NO KNOWN CONCENTRATION)
     Route: 030
     Dates: start: 20050304
  2. KLONOPIN [Concomitant]
     Indication: MUSCLE TWITCHING
     Dosage: 1.5MG, TID
     Route: 048
  3. KEPPRA [Concomitant]
     Indication: MUSCLE TWITCHING
     Route: 048
  4. XANAX [Concomitant]
     Indication: MUSCLE TWITCHING
     Route: 048
  5. UNSPECIFIED MULTIPLE PSYCHOTROPIC AGENTS [Concomitant]
     Indication: PSYCHOTIC DISORDER

REACTIONS (1)
  - THERAPEUTIC RESPONSE DECREASED [None]
